FAERS Safety Report 25183437 (Version 1)
Quarter: 2025Q2

REPORT INFORMATION
  Report Type: Spontaneous
  Country: US (occurrence: US)
  Receive Date: 20250410
  Receipt Date: 20250410
  Transmission Date: 20250717
  Serious: Yes (Hospitalization, Other)
  Sender: STRIDES
  Company Number: US-STRIDES ARCOLAB LIMITED-2025SP004633

PATIENT
  Age: 25 Year
  Sex: Male

DRUGS (4)
  1. TESTOSTERONE [Suspect]
     Active Substance: TESTOSTERONE
     Indication: Supplementation therapy
     Route: 065
  2. LIOTHYRONINE [Suspect]
     Active Substance: LIOTHYRONINE
     Indication: Supplementation therapy
     Route: 065
  3. STANOZOLOL [Concomitant]
     Active Substance: STANOZOLOL
     Indication: Drug abuse
     Route: 065
  4. CLENBUTEROL [Concomitant]
     Active Substance: CLENBUTEROL
     Indication: Drug abuse
     Route: 065

REACTIONS (6)
  - Cardiomyopathy [Recovering/Resolving]
  - Ventricular fibrillation [Recovering/Resolving]
  - Cardiac arrest [Recovering/Resolving]
  - Hyperthyroidism [Recovering/Resolving]
  - Hypertransaminasaemia [Recovered/Resolved]
  - Off label use [Unknown]
